FAERS Safety Report 4919016-1 (Version None)
Quarter: 2006Q1

REPORT INFORMATION
  Report Type: 
  Country: None (occurrence: None)
  Receive Date: 20060222
  Receipt Date: 20060210
  Transmission Date: 20060701
  Serious: Yes (Other)
  Sender: FDA-Public Use
  Company Number: FR-BRISTOL-MYERS SQUIBB COMPANY-13284674

PATIENT
  Sex: Female

DRUGS (1)
  1. REYATAZ [Suspect]
     Route: 048

REACTIONS (1)
  - NEPHROLITHIASIS [None]
